FAERS Safety Report 25510572 (Version 1)
Quarter: 2025Q3

REPORT INFORMATION
  Report Type: Spontaneous
  Country: CN (occurrence: CN)
  Receive Date: 20250703
  Receipt Date: 20250703
  Transmission Date: 20251021
  Serious: Yes (Life-Threatening, Hospitalization)
  Sender: BAYER HEALTHCARE PHARMACEUTICALS INC.
  Company Number: CN-BAYER-2025A087256

PATIENT
  Age: 72 Year
  Sex: Female

DRUGS (5)
  1. KERENDIA [Suspect]
     Active Substance: FINERENONE
     Indication: Diabetic nephropathy
     Dosage: 10 MG, QD
     Route: 048
     Dates: start: 20250613, end: 20250629
  2. VALSARTAN [Concomitant]
     Active Substance: VALSARTAN
     Dosage: 80 MG, QD
     Route: 048
     Dates: end: 20250629
  3. FELODIPINE [Concomitant]
     Active Substance: FELODIPINE
     Dosage: 5 MG, QD
     Route: 048
  4. GLIPIZIDE\METFORMIN HYDROCHLORIDE [Concomitant]
     Active Substance: GLIPIZIDE\METFORMIN HYDROCHLORIDE
     Dosage: 1 DF, BID
     Route: 048
     Dates: end: 20250629
  5. DAPAGLIFLOZIN [Concomitant]
     Active Substance: DAPAGLIFLOZIN
     Dosage: 10 MG, QD
     Route: 048
     Dates: end: 20250629

REACTIONS (8)
  - Acute kidney injury [Recovering/Resolving]
  - Hyperkalaemia [Recovered/Resolved]
  - Asthenia [Recovering/Resolving]
  - Muscle twitching [Recovering/Resolving]
  - Myalgia [None]
  - Hyperhidrosis [None]
  - Product prescribing issue [None]
  - Incorrect dose administered [None]

NARRATIVE: CASE EVENT DATE: 20250613
